FAERS Safety Report 6196569-X (Version None)
Quarter: 2009Q2

REPORT INFORMATION
  Report Type: 
  Country: None (occurrence: None)
  Receive Date: 20090520
  Receipt Date: 20090519
  Transmission Date: 20091009
  Serious: No
  Sender: FDA-Public Use
  Company Number: US-B.I. PHARMACEUTICALS,INC./RIDGEFIELD-2007-BP-05085BP

PATIENT
  Sex: Female

DRUGS (5)
  1. ATROVENT HFA [Suspect]
     Indication: CHRONIC OBSTRUCTIVE PULMONARY DISEASE
     Dosage: 51MCG
     Route: 055
     Dates: start: 20050101
  2. ATROVENT HFA [Suspect]
     Indication: EMPHYSEMA
  3. PEPCID [Concomitant]
     Indication: GASTROOESOPHAGEAL REFLUX DISEASE
  4. PEPCID [Concomitant]
  5. ASPIRIN [Concomitant]

REACTIONS (4)
  - ALOPECIA [None]
  - DRUG INEFFECTIVE [None]
  - HEART RATE IRREGULAR [None]
  - LIP PAIN [None]
